FAERS Safety Report 10068689 (Version 1)
Quarter: 2014Q2

REPORT INFORMATION
  Report Type: Spontaneous
  Country: US (occurrence: US)
  Receive Date: 20140409
  Receipt Date: 20140409
  Transmission Date: 20141212
  Serious: No
  Sender: FDA-Public Use
  Company Number: US-MYLANLABS-2013S1028384

PATIENT
  Age: 66 Year
  Sex: Female
  Weight: 95.26 kg

DRUGS (10)
  1. METOPROLOL SUCCINATE EXTENDED-RELEASE TABLETS USP [Suspect]
     Indication: BLOOD PRESSURE
     Route: 048
  2. DIOVAN [Concomitant]
  3. HCTZ [Concomitant]
  4. PHENOBARBITAL [Concomitant]
     Indication: TREMOR
  5. SIMVASTATIN [Concomitant]
  6. VITAMIN E [Concomitant]
  7. MULTIVITAMIN [Concomitant]
  8. ASPIRIN [Concomitant]
     Dosage: LOW DOSE
  9. PAXIL /00830802/ [Concomitant]
  10. METFORMIN [Concomitant]

REACTIONS (4)
  - Drug ineffective [Not Recovered/Not Resolved]
  - Palpitations [Not Recovered/Not Resolved]
  - Blood pressure increased [Not Recovered/Not Resolved]
  - Alopecia [Not Recovered/Not Resolved]
